FAERS Safety Report 7251783-7 (Version None)
Quarter: 2011Q1

REPORT INFORMATION
  Report Type: 
  Country: None (occurrence: None)
  Receive Date: 20110128
  Receipt Date: 20100115
  Transmission Date: 20110831
  Serious: No
  Sender: FDA-Public Use
  Company Number: US-ABBOTT-10P-163-0620609-00

PATIENT
  Sex: Female
  Weight: 59.6 kg

DRUGS (1)
  1. HUMIRA [Suspect]
     Indication: CROHN'S DISEASE
     Route: 058
     Dates: start: 20091230

REACTIONS (7)
  - CHEST DISCOMFORT [None]
  - DISTURBANCE IN ATTENTION [None]
  - INJECTION SITE ERYTHEMA [None]
  - FEELING ABNORMAL [None]
  - INJECTION SITE PAIN [None]
  - FATIGUE [None]
  - LETHARGY [None]
